FAERS Safety Report 8819072 (Version 1)
Quarter: 2012Q4

REPORT INFORMATION
  Report Type: Report from Study
  Country: CA (occurrence: CA)
  Receive Date: 20121001
  Receipt Date: 20121001
  Transmission Date: 20130627
  Serious: Yes (Other)
  Sender: FDA-Public Use
  Company Number: CA-JNJFOC-20120910324

PATIENT
  Sex: Female
  Weight: 49.5 kg

DRUGS (5)
  1. REMICADE [Suspect]
     Indication: CROHN^S DISEASE
     Dosage: 8/52
     Route: 042
     Dates: start: 20120809
  2. MULTIVITAMINS [Concomitant]
     Route: 065
  3. IMURAN [Concomitant]
     Route: 065
  4. CALCIUM [Concomitant]
     Route: 065
  5. VITAMIN D [Concomitant]
     Route: 065

REACTIONS (2)
  - Surgery [Unknown]
  - Psoriasis [Unknown]
